FAERS Safety Report 18523417 (Version 4)
Quarter: 2021Q2

REPORT INFORMATION
  Report Type: Spontaneous
  Country: US (occurrence: US)
  Receive Date: 20201119
  Receipt Date: 20210614
  Transmission Date: 20210717
  Serious: No
  Sender: FDA-Public Use
  Company Number: US-PFIZER INC-2018390368

PATIENT
  Age: 70 Year
  Sex: Female
  Weight: 77.11 kg

DRUGS (6)
  1. CELEBREX [Suspect]
     Active Substance: CELECOXIB
     Indication: RHEUMATOID ARTHRITIS
     Dosage: 100 MG, 3X/DAY (WITH FOOD)
     Route: 048
  2. CELEBREX [Suspect]
     Active Substance: CELECOXIB
     Dosage: 300 MG, DAILY (TAKE TWO IN THE AM AND ONE IN THE PM)
     Route: 048
  3. CELEBREX [Suspect]
     Active Substance: CELECOXIB
     Dosage: 3 DF, DAILY (3 PILLS A DAY )
  4. CELEBREX [Suspect]
     Active Substance: CELECOXIB
     Dosage: 4 DF, DAILY (4 PILLS A DAY )
  5. CELEBREX [Suspect]
     Active Substance: CELECOXIB
     Dosage: UNK, 1X/DAY
     Route: 048
  6. CELEBREX [Suspect]
     Active Substance: CELECOXIB
     Dosage: 100 MG, 3X/DAY

REACTIONS (5)
  - Off label use [Unknown]
  - Product use issue [Unknown]
  - Product prescribing issue [Unknown]
  - Drug ineffective [Unknown]
  - Intentional product use issue [Unknown]

NARRATIVE: CASE EVENT DATE: 202008
